FAERS Safety Report 10400472 (Version 1)
Quarter: 2014Q3

REPORT INFORMATION
  Report Type: Spontaneous
  Country: US (occurrence: US)
  Receive Date: 20140821
  Receipt Date: 20140821
  Transmission Date: 20150326
  Serious: No
  Sender: FDA-Public Use
  Company Number: US-ASTRAZENECA-2013SE84232

PATIENT
  Age: 64 Year
  Sex: Female
  Weight: 77.1 kg

DRUGS (2)
  1. UNKNOWN ANTIBIOTIC [Concomitant]
     Active Substance: UNSPECIFIED INGREDIENT
  2. SYMBICORT [Suspect]
     Active Substance: BUDESONIDE\FORMOTEROL FUMARATE DIHYDRATE
     Indication: UPPER RESPIRATORY TRACT INFECTION
     Dosage: 160/4.5 MCG 2 PUFFS, ONCE IN THE MORNING AND ONCE IN THE EVENING
     Route: 055
     Dates: start: 20131111

REACTIONS (3)
  - Nervousness [Unknown]
  - Intentional product misuse [Unknown]
  - Off label use [Not Recovered/Not Resolved]

NARRATIVE: CASE EVENT DATE: 20131111
